FAERS Safety Report 9713439 (Version 2)
Quarter: 2014Q2

REPORT INFORMATION
  Report Type: Spontaneous
  Country: US (occurrence: US)
  Receive Date: 20131126
  Receipt Date: 20140417
  Transmission Date: 20141212
  Serious: Yes (Other)
  Sender: FDA-Public Use
  Company Number: US-ELI_LILLY_AND_COMPANY-US201311005970

PATIENT
  Age: 74 Year
  Sex: Male

DRUGS (29)
  1. INSULIN HUMAN [Suspect]
     Indication: TYPE 2 DIABETES MELLITUS
     Dosage: 32 U, EACH MORNING
     Route: 065
  2. INSULIN HUMAN [Suspect]
     Dosage: 34 U, EACH EVENING
     Route: 065
  3. ARIXTRA [Concomitant]
     Dosage: 7.5 MG, UNKNOWN
  4. CALCIUM 600 + D [Concomitant]
     Dosage: 1 DF, BID
     Route: 048
  5. GLUCOSAMINE SULFATE [Concomitant]
     Dosage: 500 MG, BID
     Route: 048
  6. TEMOVATE [Concomitant]
     Dosage: UNK, BID
     Route: 061
  7. GLUCOPHAGE [Concomitant]
     Dosage: 500 MG, TID
     Route: 048
  8. DESYREL [Concomitant]
     Dosage: 50 MG, EACH EVENING
     Route: 048
  9. TYLENOL                            /00020001/ [Concomitant]
     Dosage: 2 DF, PRN
     Route: 048
  10. TRICOR                             /00090101/ [Concomitant]
     Dosage: 145 MG, QD
     Route: 048
  11. WELLBUTRIN [Concomitant]
     Dosage: 100 MG, BID
     Route: 048
  12. MIRALAX [Concomitant]
     Dosage: 17 G, QD
     Route: 048
  13. CYMBALTA [Concomitant]
     Dosage: 60 MG, EACH EVENING
     Route: 048
  14. NEURONTIN [Concomitant]
     Dosage: 2 DF, BID
     Route: 048
  15. NEXIUM                             /01479302/ [Concomitant]
     Dosage: 40 MG, QD
     Route: 048
  16. FLOMAX                             /00889901/ [Concomitant]
     Dosage: 0.4 MG, QD
     Route: 048
  17. NORVASC [Concomitant]
     Dosage: UNK
     Route: 048
  18. SYNTHROID [Concomitant]
     Dosage: 75 UG, QD
     Route: 048
  19. PLAQUENIL                          /00072602/ [Concomitant]
     Dosage: 200 MG, BID
     Route: 048
  20. LOTRIMIN                           /00212501/ [Concomitant]
     Dosage: UNK, BID
     Route: 061
  21. VENTOLIN HFA [Concomitant]
     Indication: WHEEZING
     Dosage: 2 DF, QID
     Route: 055
  22. COLESTID [Concomitant]
     Dosage: 1 G, BID
     Route: 048
  23. ZOFRAN [Concomitant]
     Dosage: 4 MG, PRN
     Route: 048
  24. LIDODERM [Concomitant]
     Dosage: 1 DF, BID
  25. CYANOCOBALAMIN [Concomitant]
     Dosage: 1000 UG, QD
     Route: 048
  26. XARELTO [Concomitant]
     Dosage: 10 MG, QD
     Route: 048
  27. ASPIRIN [Concomitant]
     Dosage: 81 MG, QD
     Route: 048
  28. REMERON [Concomitant]
     Dosage: 15 MG, EACH EVENING
     Route: 048
  29. ROXICODONE [Concomitant]
     Indication: PAIN
     Dosage: 5 MG, PRN
     Route: 048

REACTIONS (8)
  - Blindness unilateral [Unknown]
  - Cataract [Unknown]
  - Diabetic retinal oedema [Unknown]
  - Blood glucose increased [Unknown]
  - Diabetic retinopathy [Unknown]
  - Road traffic accident [Unknown]
  - Glycosylated haemoglobin increased [Unknown]
  - Incorrect product storage [Unknown]
